FAERS Safety Report 7411580-6 (Version None)
Quarter: 2011Q2

REPORT INFORMATION
  Report Type: 
  Country: None (occurrence: None)
  Receive Date: 20110413
  Receipt Date: 20100908
  Transmission Date: 20111010
  Serious: Yes (Hospitalization)
  Sender: FDA-Public Use
  Company Number: US-BRISTOL-MYERS SQUIBB COMPANY-15277379

PATIENT
  Age: 5 Decade
  Sex: Male

DRUGS (3)
  1. ERBITUX [Suspect]
     Dosage: STARTED AT LOW INF RATE FOR 15MIN AND THEN TO NORMAL INF RATE
  2. DEXAMETHASONE [Concomitant]
     Indication: PREMEDICATION
  3. BENADRYL [Concomitant]
     Indication: PREMEDICATION

REACTIONS (3)
  - LOSS OF CONSCIOUSNESS [None]
  - HEART RATE DECREASED [None]
  - HYPOTENSION [None]
